FAERS Safety Report 8339623-6 (Version None)
Quarter: 2012Q2

REPORT INFORMATION
  Report Type: 
  Country: None (occurrence: None)
  Receive Date: 20120507
  Receipt Date: 20120430
  Transmission Date: 20120825
  Serious: Yes (Hospitalization, Other)
  Sender: FDA-Public Use
  Company Number: US-BAYER-2012-003157

PATIENT
  Age: 28 Year
  Sex: Female
  Weight: 74.83 kg

DRUGS (4)
  1. PAXIL [Concomitant]
     Indication: ANXIETY
  2. PAXIL [Concomitant]
     Indication: DEPRESSION
     Dosage: UNK
     Dates: start: 19970101
  3. SEASONALE [Concomitant]
     Indication: CONTRACEPTION
  4. YASMIN [Suspect]
     Dosage: UNK
     Dates: start: 20050401, end: 20060401

REACTIONS (7)
  - BILIARY DYSKINESIA [None]
  - PAIN [None]
  - ANXIETY [None]
  - PSYCHOLOGICAL TRAUMA [None]
  - EMOTIONAL DISTRESS [None]
  - FEAR [None]
  - GALLBLADDER DISORDER [None]
